FAERS Safety Report 8779621 (Version 1)
Quarter: 2012Q4

REPORT INFORMATION
  Report Type: 
  Country: CN (occurrence: CN)
  Receive Date: 20120912
  Receipt Date: 20120912
  Transmission Date: 20130627
  Serious: Yes (Other)
  Sender: FDA-Public Use
  Company Number: CN-BRISTOL-MYERS SQUIBB COMPANY-16888141

PATIENT
  Age: 76 Year
  Sex: Female

DRUGS (4)
  1. METFORMIN HCL [Suspect]
     Indication: TYPE 2 DIABETES MELLITUS
     Route: 048
     Dates: start: 20090903, end: 20090908
  2. EPALRESTAT [Suspect]
     Indication: TYPE 2 DIABETES MELLITUS
  3. EPALRESTAT [Suspect]
     Indication: TYPE 2 DIABETES MELLITUS
  4. TRIMEBUTINE [Suspect]

REACTIONS (4)
  - Hallucination, visual [Recovering/Resolving]
  - Hallucination, auditory [Recovering/Resolving]
  - Hypoglycaemia [Recovering/Resolving]
  - Abdominal distension [Recovering/Resolving]
